FAERS Safety Report 5481402-1 (Version None)
Quarter: 2007Q4

REPORT INFORMATION
  Report Type: 
  Country: None (occurrence: None)
  Receive Date: 20071010
  Receipt Date: 20071004
  Transmission Date: 20080405
  Serious: Yes (Hospitalization)
  Sender: FDA-Public Use
  Company Number: A0669477A

PATIENT
  Age: 53 Year
  Sex: Female

DRUGS (5)
  1. LAMICTAL [Suspect]
     Indication: BIPOLAR DISORDER
     Route: 048
     Dates: start: 20051007, end: 20060505
  2. ESTROGEN [Concomitant]
  3. PROGESTERONE [Concomitant]
  4. LIPITOR [Concomitant]
  5. COZAAR [Concomitant]

REACTIONS (18)
  - ANXIETY [None]
  - CRYING [None]
  - DECREASED APPETITE [None]
  - DEPRESSED MOOD [None]
  - DEPRESSIVE SYMPTOM [None]
  - DIZZINESS [None]
  - DRY MOUTH [None]
  - DRY SKIN [None]
  - FATIGUE [None]
  - HYPOTHYROIDISM [None]
  - NERVOUSNESS [None]
  - PARAESTHESIA ORAL [None]
  - PAROSMIA [None]
  - PHOTOSENSITIVITY REACTION [None]
  - PRURITUS [None]
  - RASH [None]
  - STOMACH DISCOMFORT [None]
  - SWOLLEN TONGUE [None]
